FAERS Safety Report 24303058 (Version 1)
Quarter: 2024Q3

REPORT INFORMATION
  Report Type: Spontaneous
  Country: US (occurrence: None)
  Receive Date: 20240909
  Receipt Date: 20240909
  Transmission Date: 20241017
  Serious: Yes (Disabling)
  Sender: Public
  Company Number: None

PATIENT
  Age: 22 Year
  Sex: Female
  Weight: 54 kg

DRUGS (3)
  1. CLARAVIS [Suspect]
     Active Substance: ISOTRETINOIN
     Indication: Acne
     Dates: start: 20200713, end: 20210129
  2. BUPROPION [Concomitant]
  3. LAMOTRIGINE [Concomitant]

REACTIONS (5)
  - Decreased appetite [None]
  - Quality of life decreased [None]
  - Presyncope [None]
  - Appetite disorder [None]
  - Malnutrition [None]

NARRATIVE: CASE EVENT DATE: 20200713
